FAERS Safety Report 11086643 (Version 2)
Quarter: 2016Q1

REPORT INFORMATION
  Report Type: Spontaneous
  Country: US (occurrence: US)
  Receive Date: 20150504
  Receipt Date: 20160328
  Transmission Date: 20160525
  Serious: Yes (Hospitalization, Other)
  Sender: FDA-Public Use
  Company Number: US-TEVA-559382USA

PATIENT
  Age: 44 Year
  Sex: Female

DRUGS (3)
  1. LISINOPRIL. [Suspect]
     Active Substance: LISINOPRIL
     Indication: OVERDOSE
     Dosage: UNKNOWN QUANTITY OF 40 MG TABLETS
     Route: 048
  2. ATENOLOL. [Suspect]
     Active Substance: ATENOLOL
     Indication: OVERDOSE
     Dosage: 4.5 G OVERDOSE AMOUNT/90, 50MG TABLETS (OVERDOSE AMOUNT)
     Route: 048
  3. CHLORTALIDONE [Suspect]
     Active Substance: CHLORTHALIDONE
     Indication: OVERDOSE
     Dosage: 2.25 G/90, 25MG TABLETS (OVERDOSE AMOUNT)
     Route: 048

REACTIONS (7)
  - Renal failure [Recovered/Resolved]
  - Overdose [Recovered/Resolved]
  - Acute respiratory distress syndrome [Recovered/Resolved]
  - Mental status changes [Recovered/Resolved]
  - Cardiotoxicity [Recovered/Resolved]
  - Hypotension [Recovered/Resolved]
  - Cardiac output decreased [Recovered/Resolved]
